FAERS Safety Report 11939238 (Version 1)
Quarter: 2016Q1

REPORT INFORMATION
  Report Type: Spontaneous
  Country: PL (occurrence: PL)
  Receive Date: 20160122
  Receipt Date: 20160122
  Transmission Date: 20160526
  Serious: Yes (Death, Other)
  Sender: FDA-Public Use
  Company Number: PL-TEVA-627679ISR

PATIENT
  Age: 58 Year
  Sex: Female

DRUGS (5)
  1. VALGANCICLOVIR [Suspect]
     Active Substance: VALGANCICLOVIR
     Route: 065
  2. METHYLPREDNISOLONE. [Suspect]
     Active Substance: METHYLPREDNISOLONE
     Route: 065
  3. MYCOPHENOLATE MOFETIL. [Suspect]
     Active Substance: MYCOPHENOLATE MOFETIL
     Indication: IMMUNOSUPPRESSION
     Dosage: 2000 MILLIGRAM DAILY;
     Route: 065
  4. TACROLIMUS. [Suspect]
     Active Substance: TACROLIMUS
     Indication: IMMUNOSUPPRESSION
     Dosage: .5 MILLIGRAM DAILY;
     Route: 065
  5. PANTOPRAZOLE [Suspect]
     Active Substance: PANTOPRAZOLE SODIUM
     Route: 065

REACTIONS (25)
  - Proteus infection [Unknown]
  - Escherichia sepsis [Unknown]
  - Diabetes mellitus [Unknown]
  - Pneumonia klebsiella [Unknown]
  - Depression [Unknown]
  - Acinetobacter infection [Unknown]
  - Escherichia urinary tract infection [Unknown]
  - Hypogammaglobulinaemia [Unknown]
  - Otitis media [Unknown]
  - Transplant rejection [Unknown]
  - Pseudomonas infection [Unknown]
  - Bone disorder [Unknown]
  - Sepsis [Fatal]
  - Pulmonary embolism [Unknown]
  - Anxiety disorder [Unknown]
  - Candida infection [Unknown]
  - Corynebacterium infection [Unknown]
  - Cytomegalovirus infection [Unknown]
  - Aspergillus infection [Unknown]
  - Leukopenia [Unknown]
  - Renal failure [Unknown]
  - Diabetes mellitus inadequate control [Unknown]
  - Bronchitis [Unknown]
  - Sinus polyp [Unknown]
  - Traumatic haematoma [Unknown]
